FAERS Safety Report 23102485 (Version 2)
Quarter: 2023Q4

REPORT INFORMATION
  Report Type: Other
  Country: IN (occurrence: IN)
  Receive Date: 20231025
  Receipt Date: 20231103
  Transmission Date: 20240109
  Serious: Yes (Other)
  Sender: FDA-Public Use
  Company Number: IN-ALVOGEN-2023092424

PATIENT
  Age: 21 Year
  Sex: Male

DRUGS (2)
  1. METHOTREXATE [Suspect]
     Active Substance: METHOTREXATE
     Indication: Juvenile idiopathic arthritis
     Dosage: PER WEEK
     Route: 048
  2. ADALIMUMAB [Suspect]
     Active Substance: ADALIMUMAB\ISOPROPYL ALCOHOL
     Indication: Juvenile idiopathic arthritis

REACTIONS (4)
  - Eye infection toxoplasmal [Recovered/Resolved]
  - Retinitis [Recovered/Resolved]
  - Choroiditis [Recovered/Resolved]
  - Vitritis [Recovering/Resolving]
